FAERS Safety Report 4362114-4 (Version None)
Quarter: 2004Q2

REPORT INFORMATION
  Report Type: 
  Country: None (occurrence: None)
  Receive Date: 20040517
  Receipt Date: 20040505
  Transmission Date: 20050107
  Serious: Yes (Hospitalization)
  Sender: FDA-Public Use
  Company Number: DSA_70265_2004

PATIENT
  Age: 54 Year
  Sex: Female

DRUGS (3)
  1. MORPHINE SULFATE [Suspect]
  2. LAXATIVES [Suspect]
     Indication: CONSTIPATION
  3. ELAN STUDY [Concomitant]

REACTIONS (13)
  - ANAEMIA [None]
  - COLONIC HAEMORRHAGE [None]
  - DIARRHOEA [None]
  - DRUG EFFECT DECREASED [None]
  - FAECAL INCONTINENCE [None]
  - FIBROSIS [None]
  - GASTROINTESTINAL NECROSIS [None]
  - HAEMORRHOIDS [None]
  - INTESTINAL ISCHAEMIA [None]
  - POST PROCEDURAL PAIN [None]
  - POSTOPERATIVE FEVER [None]
  - RECTAL HAEMORRHAGE [None]
  - RECTAL PROLAPSE [None]
